FAERS Safety Report 7018382-3 (Version None)
Quarter: 2010Q3

REPORT INFORMATION
  Report Type: 
  Country: None (occurrence: None)
  Receive Date: 20100928
  Receipt Date: 20100920
  Transmission Date: 20110219
  Serious: Yes (Hospitalization)
  Sender: FDA-Public Use
  Company Number: PHHY2010TW17361

PATIENT
  Sex: Male

DRUGS (2)
  1. GLEEVEC [Suspect]
     Indication: GASTROINTESTINAL STROMAL TUMOUR
     Dosage: 400 (UNITS UNKNOWN)
     Route: 048
  2. GLEEVEC [Suspect]
     Dosage: 800 MG PER DAY
     Route: 048

REACTIONS (3)
  - METASTATIC NEOPLASM [None]
  - NEOPLASM PROGRESSION [None]
  - SURGERY [None]
